FAERS Safety Report 16211531 (Version 2)
Quarter: 2019Q2

REPORT INFORMATION
  Report Type: Spontaneous
  Country: US (occurrence: US)
  Receive Date: 20190418
  Receipt Date: 20190530
  Transmission Date: 20190711
  Serious: No
  Sender: FDA-Public Use
  Company Number: US-GLAXOSMITHKLINE-US2019AMR068871

PATIENT
  Age: 56 Year
  Sex: Male

DRUGS (1)
  1. WELLBUTRIN [Suspect]
     Active Substance: BUPROPION HYDROCHLORIDE
     Indication: DEPRESSION
     Dosage: UNK

REACTIONS (7)
  - Dental caries [Unknown]
  - Weight decreased [Unknown]
  - Tooth fracture [Unknown]
  - Tooth infection [Unknown]
  - Tooth extraction [Recovering/Resolving]
  - Oral pain [Unknown]
  - Mouth swelling [Unknown]
